FAERS Safety Report 14923557 (Version 3)
Quarter: 2022Q3

REPORT INFORMATION
  Report Type: Spontaneous
  Country: US (occurrence: US)
  Receive Date: 20180522
  Receipt Date: 20220808
  Transmission Date: 20221027
  Serious: Yes (Hospitalization, Other)
  Sender: FDA-Public Use
  Company Number: US-PFIZER INC-2018204352

PATIENT
  Age: 55 Year
  Sex: Female

DRUGS (5)
  1. THYMOCYTE IMMUNE GLOBULIN NOS [Suspect]
     Active Substance: THYMOCYTE IMMUNE GLOBULIN NOS
     Indication: Immunosuppression
     Dosage: UNK, (TOTAL 6 MG/KG IN DIVIDED DOSES)
  2. TACROLIMUS [Suspect]
     Active Substance: TACROLIMUS
     Indication: Immunosuppression
     Dosage: 3 MG, 2X/DAY, (3 MG/12 H)
  3. MYCOPHENOLIC ACID [Suspect]
     Active Substance: MYCOPHENOLIC ACID
     Indication: Immunosuppression
     Dosage: 720 MG, 2X/DAY, (720 MG/12 H)
  4. PREDNISONE [Suspect]
     Active Substance: PREDNISONE
     Indication: Immunosuppression
     Dosage: 20 MG, 1X/DAY, (20 MG/24 H WITH A STANDARD TAPER)
  5. METRONIDAZOLE [Concomitant]
     Active Substance: METRONIDAZOLE
     Indication: Clostridium difficile colitis
     Dosage: 500 MG, 3X/DAY, (500 MG/8 H)

REACTIONS (1)
  - Necrotising fasciitis [Unknown]
